FAERS Safety Report 4380412-5 (Version None)
Quarter: 2004Q2

REPORT INFORMATION
  Report Type: 
  Country: None (occurrence: None)
  Receive Date: 20040614
  Receipt Date: 20040526
  Transmission Date: 20050107
  Serious: Yes (Death)
  Sender: FDA-Public Use
  Company Number: 2004-DE-03101GD

PATIENT
  Sex: Male

DRUGS (2)
  1. CYCLOPHOSPHAMIDE [Suspect]
     Indication: WEGENER'S GRANULOMATOSIS
  2. CORTICOSTROIDS (CORTICOSTEROIDS) [Suspect]
     Indication: WEGENER'S GRANULOMATOSIS

REACTIONS (2)
  - MYELODYSPLASTIC SYNDROME [None]
  - WEGENER'S GRANULOMATOSIS [None]
